FAERS Safety Report 5467923-6 (Version None)
Quarter: 2007Q3

REPORT INFORMATION
  Report Type: 
  Country: None (occurrence: None)
  Receive Date: 20070924
  Receipt Date: 20070911
  Transmission Date: 20080115
  Serious: Yes (Disabling, Other)
  Sender: FDA-Public Use
  Company Number: 2007-00046

PATIENT
  Age: 60 Year
  Sex: Male
  Weight: 45 kg

DRUGS (20)
  1. VELCADE [Suspect]
     Indication: MULTIPLE MYELOMA
     Dosage: 1.90 MG; 1.50 MG, INTRAVENOUS
     Route: 042
     Dates: start: 20061212, end: 20070130
  2. VELCADE [Suspect]
     Indication: MULTIPLE MYELOMA
     Dosage: 1.90 MG; 1.50 MG, INTRAVENOUS
     Route: 042
     Dates: start: 20070316, end: 20070323
  3. ALBUMIN (HUMAN) [Suspect]
     Indication: DRUG USE FOR UNKNOWN INDICATION
     Dosage: 50.00 ML
     Dates: start: 20061214, end: 20061220
  4. DEXAMETHASONE 0.5MG TAB [Concomitant]
  5. MUCOSTA (REBAMIPIDE) [Concomitant]
  6. ZANTAC 150 [Concomitant]
  7. BAKTAR (SULFAMETHOXAZOLE, TRIMETHOPRIM) [Concomitant]
  8. DIFLUCAN [Concomitant]
  9. BIOFERMIN R (STREPTOCOCCUS FAECALIS) [Concomitant]
  10. ZOVIRAX [Concomitant]
  11. NASEA (RAMOSETRON HYDROCHLORIDE) [Concomitant]
  12. LASIX [Concomitant]
  13. NOVOLIN R [Concomitant]
  14. KAYEXALATE [Concomitant]
  15. ALLOPURINOL [Concomitant]
  16. VOLTAREN [Concomitant]
  17. CALONAL (PARACETAMOL) [Concomitant]
  18. CHLOR-TRIMETON [Concomitant]
  19. PLATELET, HUMAN BLOOD (PLATELETS, HUMAN BLOOD) [Concomitant]
  20. ZOLPIDEM TARTRATE [Concomitant]

REACTIONS (13)
  - C-REACTIVE PROTEIN INCREASED [None]
  - DYSURIA [None]
  - ELECTROCARDIOGRAM T WAVE ABNORMAL [None]
  - HYPERKALAEMIA [None]
  - NEOPLASM [None]
  - NEUROPATHY PERIPHERAL [None]
  - NEUTROPENIA [None]
  - NEUTROPHIL COUNT DECREASED [None]
  - PARAPLEGIA [None]
  - PLATELET COUNT DECREASED [None]
  - SPINAL DISORDER [None]
  - TUMOUR LYSIS SYNDROME [None]
  - WHITE BLOOD CELL COUNT DECREASED [None]
